FAERS Safety Report 14599318 (Version 1)
Quarter: 2018Q1

REPORT INFORMATION
  Report Type: Spontaneous
  Country: BG (occurrence: BG)
  Receive Date: 20180305
  Receipt Date: 20180305
  Transmission Date: 20180509
  Serious: Yes (Hospitalization)
  Sender: FDA-Public Use
  Company Number: BG-JNJFOC-20180300040

PATIENT
  Age: 76 Year
  Sex: Male

DRUGS (9)
  1. TORASEMIDE [Concomitant]
     Active Substance: TORSEMIDE
     Route: 065
  2. TRIMETAZIDINE [Concomitant]
     Active Substance: TRIMETAZIDINE
     Route: 065
  3. DILATREND [Concomitant]
     Active Substance: CARVEDILOL
     Route: 065
  4. OMEPRAZOLE. [Concomitant]
     Active Substance: OMEPRAZOLE
     Route: 065
  5. TEOTARD [Concomitant]
     Active Substance: THEOPHYLLINE ANHYDROUS
     Route: 065
  6. DIAPREL MR [Concomitant]
     Active Substance: GLICLAZIDE
     Route: 065
  7. ROSUVASTATIN. [Concomitant]
     Active Substance: ROSUVASTATIN
     Route: 065
  8. XARELTO [Suspect]
     Active Substance: RIVAROXABAN
     Indication: THROMBOSIS PROPHYLAXIS
     Route: 048
  9. EPLERENONE. [Concomitant]
     Active Substance: EPLERENONE
     Route: 065

REACTIONS (1)
  - Cardiac failure [Unknown]
